FAERS Safety Report 24394498 (Version 1)
Quarter: 2024Q4

REPORT INFORMATION
  Report Type: Spontaneous
  Country: JP (occurrence: JP)
  Receive Date: 20241004
  Receipt Date: 20241004
  Transmission Date: 20250115
  Serious: Yes (Hospitalization)
  Sender: NOVARTIS
  Company Number: JP-002147023-NVSJ2024JP009140

PATIENT
  Age: 0 Year
  Sex: Female
  Weight: 2.314 kg

DRUGS (2)
  1. ELTROMBOPAG OLAMINE [Suspect]
     Active Substance: ELTROMBOPAG OLAMINE
     Indication: Foetal exposure during pregnancy
     Dosage: MATERNAL EXPOSURE DURING  PREGNANCY:12.5 MG
     Route: 050
     Dates: start: 20180618, end: 20231227
  2. ELTROMBOPAG OLAMINE [Suspect]
     Active Substance: ELTROMBOPAG OLAMINE
     Dosage: MATERNAL EXPOSURE DURING  PREGNANCY:12.5 MG
     Route: 050
     Dates: start: 20240111

REACTIONS (5)
  - Low birth weight baby [Recovered/Resolved]
  - Foetal disorder [Recovered/Resolved]
  - Acidosis [Recovered/Resolved]
  - Platelet count decreased [Unknown]
  - Foetal exposure during pregnancy [Unknown]

NARRATIVE: CASE EVENT DATE: 20240720
